FAERS Safety Report 7942672-0 (Version None)
Quarter: 2011Q4

REPORT INFORMATION
  Report Type: 
  Country: None (occurrence: None)
  Receive Date: 20111122
  Receipt Date: 20110808
  Transmission Date: 20120403
  Serious: Yes (Other)
  Sender: FDA-Public Use
  Company Number: PHEH2011US01081

PATIENT
  Age: 50 Year
  Sex: Male

DRUGS (15)
  1. CRESTOR [Concomitant]
  2. LUTEIN (XANTOFYL) [Concomitant]
  3. PRILOSEC [Concomitant]
  4. NEURONTIN [Concomitant]
  5. ZETIA [Concomitant]
  6. MULTI-VITAMINS [Concomitant]
  7. GILENYA [Suspect]
     Indication: MULTIPLE SCLEROSIS
     Dosage: 0.5 MG, QD, ORAL
     Route: 048
     Dates: start: 20110331
  8. LOVAZA [Concomitant]
  9. METOPROLOL TARTRATE [Concomitant]
  10. ASPIRIN [Concomitant]
  11. VITAMIN D [Concomitant]
  12. DIOVAN [Concomitant]
  13. MELATONIN (MELATONIN) [Concomitant]
  14. DILTIAZEM [Concomitant]
  15. TRIAMTEREN (TRIAMTERENE) [Concomitant]

REACTIONS (2)
  - DIVERTICULITIS [None]
  - LYMPHOCYTE COUNT DECREASED [None]
